FAERS Safety Report 15693876 (Version 1)
Quarter: 2018Q4

REPORT INFORMATION
  Report Type: Spontaneous
  Country: US (occurrence: US)
  Receive Date: 20181206
  Receipt Date: 20181206
  Transmission Date: 20190205
  Serious: Yes (Hospitalization, Other)
  Sender: FDA-Public Use
  Company Number: US-ELI_LILLY_AND_COMPANY-US201811013705

PATIENT
  Age: 48 Year
  Sex: Male

DRUGS (3)
  1. TESTOSTERONE. [Suspect]
     Active Substance: TESTOSTERONE
     Indication: PERFORMANCE ENHANCING PRODUCT USE
     Dosage: UNK UNK, IN CYCLICAL FASHION FOR 7 MONTHS EACH YEAR FOR THE LAST 4 YEARS
     Route: 065
  2. AMPHETAMINE [Interacting]
     Active Substance: AMPHETAMINE
     Indication: PERFORMANCE ENHANCING PRODUCT USE
     Dosage: 60 MG, IN CYCLICAL FASHION FOR 7 MONTHS EACH YEAR FOR THE LAST 4 YEARS
     Route: 065
  3. DEXTROAMPHETAMINE [DEXAMFETAMINE] [Interacting]
     Active Substance: DEXTROAMPHETAMINE
     Indication: PERFORMANCE ENHANCING PRODUCT USE
     Dosage: 60 MG, IN CYCLICAL FASHION FOR 7 MONTHS EACH YEAR FOR THE LAST 4 YEARS
     Route: 065

REACTIONS (3)
  - Psychotic disorder [Recovered/Resolved]
  - Food interaction [Recovered/Resolved]
  - Intentional product misuse [Recovered/Resolved]
